FAERS Safety Report 5212810-1 (Version None)
Quarter: 2007Q1

REPORT INFORMATION
  Report Type: 
  Country: None (occurrence: None)
  Receive Date: 20070119
  Receipt Date: 20070110
  Transmission Date: 20070707
  Serious: Yes (Other)
  Sender: FDA-Public Use
  Company Number: PHHO2007CO00938

PATIENT
  Age: 76 Year
  Sex: Female

DRUGS (4)
  1. DIOVAN [Suspect]
     Indication: HYPERTENSION
     Dosage: 160 MG, QD
     Route: 048
  2. BI-EUGLUCON [Concomitant]
  3. VITAMIN CAP [Concomitant]
  4. DIOVAN HCT [Suspect]
     Indication: HYPERTENSION
     Dosage: 160MG/12.5MG DAILY
     Route: 048
     Dates: start: 20070104

REACTIONS (4)
  - DRUG DISPENSING ERROR [None]
  - INSOMNIA [None]
  - PARAESTHESIA [None]
  - URINARY INCONTINENCE [None]
